FAERS Safety Report 6124073-3 (Version None)
Quarter: 2009Q1

REPORT INFORMATION
  Report Type: 
  Country: None (occurrence: None)
  Receive Date: 20090319
  Receipt Date: 20090311
  Transmission Date: 20090719
  Serious: Yes (Hospitalization)
  Sender: FDA-Public Use
  Company Number: PHHY2009FR08934

PATIENT
  Age: 66 Year
  Sex: Female

DRUGS (4)
  1. ZOMETA [Suspect]
     Indication: METASTASES TO BONE
     Dosage: 4 MG, QMO
     Dates: start: 20040401, end: 20080401
  2. TAMOXIFEN CITRATE [Concomitant]
     Indication: BREAST CANCER
  3. ARIMIDEX [Concomitant]
     Indication: METASTASES TO BONE
     Dosage: UNK
     Route: 048
     Dates: start: 20030101
  4. LYTOS [Concomitant]
     Indication: METASTASES TO BONE

REACTIONS (5)
  - DEBRIDEMENT [None]
  - IMPAIRED HEALING [None]
  - OSTEONECROSIS [None]
  - PRIMARY SEQUESTRUM [None]
  - TOOTH EXTRACTION [None]
